FAERS Safety Report 4344070-8 (Version None)
Quarter: 2004Q2

REPORT INFORMATION
  Report Type: 
  Country: None (occurrence: None)
  Receive Date: 20040419
  Receipt Date: 20040405
  Transmission Date: 20050107
  Serious: Yes (Other)
  Sender: FDA-Public Use
  Company Number: S04-FRA-01668-01

PATIENT
  Age: 94 Year
  Sex: Female

DRUGS (9)
  1. EBIXA (MEMANTINE) [Suspect]
     Indication: DEMENTIA ALZHEIMER'S TYPE
     Dosage: 10 MG QD PO
     Route: 048
     Dates: start: 20030402, end: 20030901
  2. EBIXA (MEMANTINE) [Suspect]
     Indication: DEMENTIA ALZHEIMER'S TYPE
     Dosage: 15 MG QD PO
     Route: 048
     Dates: start: 20030901
  3. EBIXA (MEMANTINE) [Suspect]
     Indication: DEMENTIA ALZHEIMER'S TYPE
     Dosage: 15 MG QD PO
     Route: 048
  4. ACUITEL (QUINAPRIL) [Concomitant]
  5. IMOVANE (ZOPICLONE) [Concomitant]
  6. LASIX [Concomitant]
  7. ZOLOFT [Concomitant]
  8. LEVOTHYROXINE (LEVOTHYROXINE SODIUM) [Concomitant]
  9. NICARDIPINE HCL [Concomitant]

REACTIONS (5)
  - CONJUNCTIVAL HAEMORRHAGE [None]
  - CREATININE RENAL CLEARANCE DECREASED [None]
  - HYPERTENSION [None]
  - MALAISE [None]
  - VERTIGO [None]
